FAERS Safety Report 12384895 (Version 2)
Quarter: 2017Q2

REPORT INFORMATION
  Report Type: Spontaneous
  Country: US (occurrence: US)
  Receive Date: 20160519
  Receipt Date: 20170403
  Transmission Date: 20170830
  Serious: No
  Sender: FDA-Public Use
  Company Number: US-009507513-1605USA006085

PATIENT
  Age: 32 Year
  Sex: Female
  Weight: 84.04 kg

DRUGS (1)
  1. NEXPLANON [Suspect]
     Active Substance: ETONOGESTREL
     Indication: CONTRACEPTION
     Dosage: 68 MG FOR THREE YEARS
     Route: 059
     Dates: start: 20150507

REACTIONS (4)
  - No adverse event [Unknown]
  - Device deployment issue [Not Recovered/Not Resolved]
  - Device kink [Not Recovered/Not Resolved]
  - Migration of implanted drug [Not Recovered/Not Resolved]

NARRATIVE: CASE EVENT DATE: 20150507
